FAERS Safety Report 12240097 (Version 1)
Quarter: 2016Q2

REPORT INFORMATION
  Report Type: Spontaneous
  Country: US (occurrence: US)
  Receive Date: 20160405
  Receipt Date: 20160405
  Transmission Date: 20160815
  Serious: Yes (Disabling)
  Sender: FDA-Public Use
  Company Number: US-HYGENIC CORPORATION-1050243

PATIENT
  Age: 40 Year
  Sex: Male
  Weight: 77.27 kg

DRUGS (1)
  1. BIOFREEZE [Suspect]
     Active Substance: MENTHOL
     Indication: MYALGIA
     Route: 061

REACTIONS (4)
  - Burns third degree [None]
  - Scar [Recovered/Resolved with Sequelae]
  - Application site burn [None]
  - Wrong technique in product usage process [None]

NARRATIVE: CASE EVENT DATE: 20160109
